FAERS Safety Report 20463157 (Version 1)
Quarter: 2022Q1

REPORT INFORMATION
  Report Type: Spontaneous
  Country: FR (occurrence: FR)
  Receive Date: 20220211
  Receipt Date: 20220211
  Transmission Date: 20220423
  Serious: Yes (Hospitalization)
  Sender: FDA-Public Use
  Company Number: None

PATIENT
  Age: 34 Year
  Sex: Female

DRUGS (4)
  1. OXYCODONE HYDROCHLORIDE [Suspect]
     Active Substance: OXYCODONE HYDROCHLORIDE
     Indication: Diabetic neuropathy
     Dosage: 2 DF, UNK (STRENGTH 5MG)
     Route: 048
     Dates: start: 20211224, end: 20211225
  2. FENTANYL [Suspect]
     Active Substance: FENTANYL
     Indication: Diabetic neuropathy
     Dosage: 1 DF, UNK
     Route: 062
     Dates: start: 20211224, end: 20211225
  3. ACUPAN [Concomitant]
     Active Substance: NEFOPAM HYDROCHLORIDE
     Indication: Diabetic neuropathy
     Dosage: 20 MG, UNK
     Route: 042
     Dates: start: 20211224, end: 20211227
  4. LYRICA [Concomitant]
     Active Substance: PREGABALIN
     Indication: Diabetic neuropathy
     Dosage: 600 MG, UNK
     Route: 048
     Dates: start: 20211224, end: 20211225

REACTIONS (1)
  - Coma [Recovered/Resolved]

NARRATIVE: CASE EVENT DATE: 20211225
